FAERS Safety Report 14215719 (Version 3)
Quarter: 2018Q1

REPORT INFORMATION
  Report Type: Spontaneous
  Country: BE (occurrence: BE)
  Receive Date: 20171122
  Receipt Date: 20180206
  Transmission Date: 20180508
  Serious: Yes (Other)
  Sender: FDA-Public Use
  Company Number: BE-LUNDBECK-DKLU2040366

PATIENT
  Age: 29 Year
  Sex: Female

DRUGS (4)
  1. FRISIUM [Suspect]
     Active Substance: CLOBAZAM
     Indication: GENERALISED TONIC-CLONIC SEIZURE
     Route: 065
  2. CEREZYME [Suspect]
     Active Substance: IMIGLUCERASE
     Indication: GAUCHER^S DISEASE
     Route: 041
  3. KEPPRA [Suspect]
     Active Substance: LEVETIRACETAM
     Route: 065
     Dates: start: 2017
  4. KEPPRA [Suspect]
     Active Substance: LEVETIRACETAM
     Indication: GENERALISED TONIC-CLONIC SEIZURE
     Route: 065

REACTIONS (10)
  - Micturition disorder [Unknown]
  - Generalised tonic-clonic seizure [Recovered/Resolved]
  - Tongue biting [Recovered/Resolved]
  - Incorrect drug administration duration [Unknown]
  - Poor quality sleep [Recovered/Resolved]
  - Stress [Unknown]
  - Pain in extremity [Unknown]
  - Fatigue [Unknown]
  - Hypersomnia [Unknown]
  - Back pain [Unknown]

NARRATIVE: CASE EVENT DATE: 20170530
